FAERS Safety Report 7107009-8 (Version None)
Quarter: 2010Q4

REPORT INFORMATION
  Report Type: 
  Country: None (occurrence: None)
  Receive Date: 20101116
  Receipt Date: 20100907
  Transmission Date: 20110411
  Serious: No
  Sender: FDA-Public Use
  Company Number: US-ABBOTT-10P-163-0669944-00

PATIENT
  Age: 50 Year
  Sex: Female

DRUGS (1)
  1. SIMCOR [Suspect]
     Indication: PRODUCT USED FOR UNKNOWN INDICATION
     Route: 048

REACTIONS (2)
  - BLISTER [None]
  - OROPHARYNGEAL BLISTERING [None]
